FAERS Safety Report 7785755-0 (Version None)
Quarter: 2011Q3

REPORT INFORMATION
  Report Type: 
  Country: None (occurrence: None)
  Receive Date: 20110929
  Receipt Date: 20110926
  Transmission Date: 20111222
  Serious: Yes (Death, Other)
  Sender: FDA-Public Use
  Company Number: JP-BAYER-2011-051643

PATIENT
  Age: 69 Year
  Sex: Male

DRUGS (29)
  1. NEXAVAR [Suspect]
     Dosage: 400 MG, QD
     Route: 048
     Dates: start: 20080507, end: 20080525
  2. ETODOLAC [Concomitant]
     Dosage: 200 MG, BID
     Route: 048
     Dates: start: 20080623, end: 20080706
  3. TAMSULOSIN HCL [Concomitant]
     Dosage: 0.2 MG, QD
     Route: 048
     Dates: start: 20080911, end: 20080914
  4. NEXAVAR [Suspect]
     Dosage: 600 MG, QD
     Route: 048
     Dates: start: 20080506, end: 20080601
  5. NEXAVAR [Suspect]
     Dosage: 600 MG, QD
     Route: 048
     Dates: start: 20080816
  6. LEVOFLOXACIN [Concomitant]
     Dosage: 100 MG, TID
     Route: 048
     Dates: start: 20080908, end: 20080914
  7. LOPERAMIDE HCL [Concomitant]
     Dosage: 1 MG, BID
     Route: 048
     Dates: start: 20080908, end: 20080914
  8. NEXAVAR [Suspect]
     Dosage: 400 MG, QD
     Route: 048
     Dates: start: 20080602, end: 20080608
  9. GASLON N [Concomitant]
     Dosage: 4 MG, QD
     Route: 048
     Dates: start: 20080218
  10. OXYCONTIN [Concomitant]
     Dosage: 10 MG, QD
     Route: 048
     Dates: start: 20080317
  11. OXINORM [Concomitant]
     Dosage: 0.5 G, QD
     Route: 048
     Dates: start: 20080404
  12. MUCOSTA [Concomitant]
     Indication: GASTRITIS PROPHYLAXIS
     Dosage: 100 MG, TID
     Route: 048
     Dates: start: 20080908, end: 20080914
  13. MAGNESIUM OXIDE [Concomitant]
     Dosage: DAILY DOSE 1.5 G
     Route: 048
     Dates: start: 20080317
  14. NEXAVAR [Suspect]
     Dosage: 800 MG, QD
     Route: 048
     Dates: start: 20080728, end: 20080803
  15. NEXAVAR [Suspect]
     Dosage: 600 MG, QD
     Route: 048
     Dates: start: 20080804, end: 20080810
  16. NEXAVAR [Suspect]
     Dosage: UNK
     Route: 048
  17. PRIMPERAN TAB [Concomitant]
     Dosage: 15 MG, QD
     Route: 048
     Dates: start: 20080319
  18. DIOVAN [Concomitant]
     Dosage: 80 MG, QD
     Route: 048
     Dates: start: 20080623, end: 20080706
  19. NEXAVAR [Suspect]
     Dosage: 800 MG, QD
     Route: 048
     Dates: start: 20080811, end: 20080815
  20. VOLTAREN [Concomitant]
     Dosage: 25 MG, QD
     Route: 054
     Dates: start: 20080911, end: 20080911
  21. NEXAVAR [Suspect]
     Dosage: 600 MG, QD
     Route: 048
     Dates: start: 20080428, end: 20080506
  22. ZOMETA [Suspect]
     Dosage: DAILY DOSE 4 MG
     Route: 042
     Dates: start: 20080317
  23. SOLCOSERYL [Concomitant]
     Indication: PROPHYLAXIS
     Dosage: UNK
     Route: 061
     Dates: start: 20080623, end: 20080623
  24. NEXAVAR [Suspect]
     Indication: RENAL CANCER
     Dosage: 400 MG, QD
     Route: 048
     Dates: start: 20080317, end: 20080427
  25. NEXAVAR [Suspect]
     Dosage: 600 MG, QD
     Route: 048
     Dates: start: 20080609, end: 20080727
  26. ETODOLAC [Concomitant]
     Dosage: 200 MG, BID
     Route: 048
     Dates: start: 20080218
  27. ETODOLAC [Concomitant]
     Dosage: 200 MG, BID
     Route: 048
     Dates: start: 20080901, end: 20080914
  28. DIOVAN [Concomitant]
     Dosage: 160 MG, QD
     Route: 048
     Dates: start: 20080901, end: 20080914
  29. CEFDINIR [Concomitant]
     Indication: INFECTION PROPHYLAXIS
     Dosage: 100 MG, TID
     Route: 048
     Dates: start: 20080623, end: 20080623

REACTIONS (19)
  - WHITE BLOOD CELL COUNT DECREASED [None]
  - ASPARTATE AMINOTRANSFERASE INCREASED [None]
  - PROSTATITIS [None]
  - NAUSEA [None]
  - PYREXIA [None]
  - BLOOD AMYLASE INCREASED [None]
  - RENAL CELL CARCINOMA [None]
  - PALMAR-PLANTAR ERYTHRODYSAESTHESIA SYNDROME [None]
  - MALAISE [None]
  - HYPERTENSION [None]
  - DIARRHOEA [None]
  - EXPOSED BONE IN JAW [None]
  - DECREASED APPETITE [None]
  - HYPOPHOSPHATAEMIA [None]
  - DYSPEPSIA [None]
  - PLATELET COUNT DECREASED [None]
  - RASH [None]
  - ANAEMIA [None]
  - HYPOCALCAEMIA [None]
